FAERS Safety Report 18102785 (Version 3)
Quarter: 2021Q1

REPORT INFORMATION
  Report Type: Spontaneous
  Country: US (occurrence: US)
  Receive Date: 20200803
  Receipt Date: 20210326
  Transmission Date: 20210419
  Serious: Yes (Other)
  Sender: FDA-Public Use
  Company Number: US-GILEAD-2020-0486598

PATIENT
  Age: 60 Year
  Sex: Male
  Weight: 122.4 kg

DRUGS (38)
  1. BREO ELLIPTA [Concomitant]
     Active Substance: FLUTICASONE FUROATE\VILANTEROL TRIFENATATE
  2. MORPHINE [Concomitant]
     Active Substance: MORPHINE
  3. PROMETHAZINE [Concomitant]
     Active Substance: PROMETHAZINE HYDROCHLORIDE
  4. ROPINIROLE. [Concomitant]
     Active Substance: ROPINIROLE
  5. CELEBREX [Concomitant]
     Active Substance: CELECOXIB
  6. KADIAN [Concomitant]
     Active Substance: MORPHINE SULFATE
  7. SYMBICORT [Concomitant]
     Active Substance: BUDESONIDE\FORMOTEROL FUMARATE DIHYDRATE
  8. TIZANIDINE. [Concomitant]
     Active Substance: TIZANIDINE
  9. CIMZIA [Concomitant]
     Active Substance: CERTOLIZUMAB PEGOL
  10. COMBIVIR [Concomitant]
     Active Substance: LAMIVUDINE\ZIDOVUDINE
  11. LISINOPRIL. [Concomitant]
     Active Substance: LISINOPRIL
  12. SIMPONI ARIA [Concomitant]
     Active Substance: GOLIMUMAB
  13. DILTIAZEM. [Concomitant]
     Active Substance: DILTIAZEM
  14. ATRIPLA [Suspect]
     Active Substance: EFAVIRENZ\EMTRICITABINE\TENOFOVIR DISOPROXIL FUMARATE
     Indication: HIV INFECTION
     Dosage: UNK
     Route: 048
     Dates: start: 20160106, end: 20181218
  15. ATORVASTATIN [Concomitant]
     Active Substance: ATORVASTATIN
  16. GABAPENTIN. [Concomitant]
     Active Substance: GABAPENTIN
  17. SULFASALAZINE. [Concomitant]
     Active Substance: SULFASALAZINE
  18. STRIBILD [Suspect]
     Active Substance: COBICISTAT\ELVITEGRAVIR\EMTRICITABINE\TENOFOVIR DISOPROXIL FUMARATE
     Indication: HIV INFECTION
     Dosage: UNK
     Route: 048
     Dates: start: 20150301, end: 20151027
  19. BIKTARVY [Concomitant]
     Active Substance: BICTEGRAVIR SODIUM\EMTRICITABINE\TENOFOVIR ALAFENAMIDE FUMARATE
  20. ARIPIPRAZOLE. [Concomitant]
     Active Substance: ARIPIPRAZOLE
  21. INTELENCE [Concomitant]
     Active Substance: ETRAVIRINE
  22. IRBESARTAN. [Concomitant]
     Active Substance: IRBESARTAN
  23. LEVOTHYROXINE. [Concomitant]
     Active Substance: LEVOTHYROXINE
  24. POTASSIUM CHLORIDE. [Concomitant]
     Active Substance: POTASSIUM CHLORIDE
  25. IBUPROFEN. [Concomitant]
     Active Substance: IBUPROFEN
  26. AMBIEN [Concomitant]
     Active Substance: ZOLPIDEM TARTRATE
  27. FLUTICASONE. [Concomitant]
     Active Substance: FLUTICASONE
  28. LIPITOR [Concomitant]
     Active Substance: ATORVASTATIN CALCIUM
  29. TORSEMIDE. [Concomitant]
     Active Substance: TORSEMIDE
  30. ZOLPIDEM [Concomitant]
     Active Substance: ZOLPIDEM TARTRATE
  31. COMPLERA [Suspect]
     Active Substance: EMTRICITABINE\RILPIVIRINE HYDROCHLORIDE\TENOFOVIR DISOPROXIL FUMARATE
     Indication: HIV INFECTION
     Dosage: UNK
     Route: 048
     Dates: start: 20151027, end: 20160106
  32. CYMBALTA [Concomitant]
     Active Substance: DULOXETINE HYDROCHLORIDE
  33. DIAZEPAM. [Concomitant]
     Active Substance: DIAZEPAM
  34. HYDROXYCHLOROQUINE [Concomitant]
     Active Substance: HYDROXYCHLOROQUINE
  35. OMEPRAZOLE. [Concomitant]
     Active Substance: OMEPRAZOLE
  36. FUROSEMIDE. [Concomitant]
     Active Substance: FUROSEMIDE
  37. PROAIR HFA [Concomitant]
     Active Substance: ALBUTEROL SULFATE
  38. TAZTIA XT [Concomitant]
     Active Substance: DILTIAZEM HYDROCHLORIDE

REACTIONS (16)
  - Pain [Unknown]
  - Anhedonia [Unknown]
  - Upper limb fracture [Recovered/Resolved]
  - Jaw fracture [Recovered/Resolved]
  - Hepatic enzyme increased [Unknown]
  - Depression [Not Recovered/Not Resolved]
  - Facial bones fracture [Recovered/Resolved]
  - Nausea [Unknown]
  - Gastric disorder [Unknown]
  - Rib fracture [Recovered/Resolved]
  - Clavicle fracture [Recovered/Resolved]
  - Osteopenia [Not Recovered/Not Resolved]
  - Emotional distress [Unknown]
  - Anxiety [Not Recovered/Not Resolved]
  - Malaise [Unknown]
  - Osteoporosis [Not Recovered/Not Resolved]

NARRATIVE: CASE EVENT DATE: 2018
